FAERS Safety Report 5067802-2 (Version None)
Quarter: 2006Q3

REPORT INFORMATION
  Report Type: 
  Country: None (occurrence: None)
  Receive Date: 20060802
  Receipt Date: 20060725
  Transmission Date: 20061208
  Serious: Yes (Death, Congenital Anomaly)
  Sender: FDA-Public Use
  Company Number: GB-GLAXOSMITHKLINE-B0432541B

PATIENT

DRUGS (2)
  1. ZIDOVUDINE [Suspect]
     Indication: RETROVIRAL INFECTION
     Dates: end: 20060306
  2. KALETRA [Suspect]
     Indication: RETROVIRAL INFECTION
     Dates: end: 20060306

REACTIONS (6)
  - CONGENITAL ANOMALY [None]
  - DEATH [None]
  - DOUBLE OUTLET RIGHT VENTRICLE [None]
  - DRUG EXPOSURE DURING PREGNANCY [None]
  - STILLBIRTH [None]
  - VENTRICULAR SEPTAL DEFECT [None]
